FAERS Safety Report 12130431 (Version 1)
Quarter: 2016Q1

REPORT INFORMATION
  Report Type: Spontaneous
  Country: US (occurrence: US)
  Receive Date: 20160301
  Receipt Date: 20160301
  Transmission Date: 20160526
  Serious: Yes (Other)
  Sender: FDA-Public Use
  Company Number: PHEH2016US004623

PATIENT
  Sex: Male

DRUGS (2)
  1. ZOMETA [Suspect]
     Active Substance: ZOLEDRONIC ACID
     Indication: PROSTATE CANCER
     Dosage: 3 MG TO 4 MG, QMO (EVERY MONTH, MONTHLY INFUSIONS)
     Route: 042
     Dates: start: 200707, end: 201103
  2. XGEVA [Suspect]
     Active Substance: DENOSUMAB
     Indication: PROSTATE CANCER
     Dosage: 120 MG, QMO (MONTHLY)
     Route: 065
     Dates: start: 201103, end: 201401

REACTIONS (9)
  - Pain in jaw [Not Recovered/Not Resolved]
  - Emotional distress [Unknown]
  - Deformity [Unknown]
  - Injury [Unknown]
  - Anxiety [Unknown]
  - Osteonecrosis of jaw [Not Recovered/Not Resolved]
  - Tooth loss [Unknown]
  - Exposed bone in jaw [Unknown]
  - Osteomyelitis [Unknown]
